FAERS Safety Report 8595298 (Version 3)
Quarter: 2012Q4

REPORT INFORMATION
  Report Type: 
  Country: ES (occurrence: ES)
  Receive Date: 20120604
  Receipt Date: 20121127
  Transmission Date: 20130627
  Serious: Yes (Death)
  Sender: FDA-Public Use
  Company Number: ES-CELGENEUS-144-21660-12053343

PATIENT
  Sex: Female

DRUGS (3)
  1. ABRAXANE [Suspect]
     Indication: PANCREATIC CANCER METASTATIC
     Route: 041
  2. GEMCITABINE [Suspect]
     Indication: PANCREATIC CANCER METASTATIC
     Route: 041
  3. G-CSF [Concomitant]
     Indication: DRUG USE FOR UNKNOWN INDICATION
     Route: 065

REACTIONS (6)
  - Death [Fatal]
  - Anaemia [Unknown]
  - Neutropenia [Unknown]
  - Fatigue [Unknown]
  - Nausea [Unknown]
  - Vomiting [Unknown]
